FAERS Safety Report 9731791 (Version 1)
Quarter: 2013Q4

REPORT INFORMATION
  Report Type: Spontaneous
  Country: US (occurrence: None)
  Receive Date: 20131204
  Receipt Date: 20131204
  Transmission Date: 20140711
  Serious: Yes (Disabling, Other)
  Sender: FDA-Public Use
  Company Number: None

PATIENT
  Age: 64 Year
  Sex: Female
  Weight: 97.52 kg

DRUGS (5)
  1. SPIRIVA HANDIHALER [Suspect]
     Indication: BRONCHOSPASM
     Dosage: 2 PUFFS, ONCE DAILY
     Route: 045
     Dates: start: 20131021, end: 20131021
  2. ADVAIR DISKUS [Concomitant]
  3. PREMARIN [Concomitant]
  4. PROVENTIL HFA [Concomitant]
  5. OMEPRAZOLE [Concomitant]

REACTIONS (21)
  - Vitreous detachment [None]
  - Eye haemorrhage [None]
  - Visual impairment [None]
  - Retinal tear [None]
  - Flushing [None]
  - Urticaria [None]
  - Heart rate increased [None]
  - Dizziness [None]
  - Nausea [None]
  - Gastrointestinal disorder [None]
  - Bladder disorder [None]
  - Headache [None]
  - Neck pain [None]
  - Arthralgia [None]
  - Pain in extremity [None]
  - Chest pain [None]
  - Myalgia [None]
  - Dry mouth [None]
  - Sleep disorder due to general medical condition, insomnia type [None]
  - Micturition urgency [None]
  - Urine output increased [None]
